FAERS Safety Report 12759393 (Version 1)
Quarter: 2016Q3

REPORT INFORMATION
  Report Type: Spontaneous
  Country: US (occurrence: US)
  Receive Date: 20160919
  Receipt Date: 20160919
  Transmission Date: 20161109
  Serious: Yes (Disabling)
  Sender: FDA-Public Use
  Company Number: None

PATIENT
  Age: 58 Year
  Sex: Female
  Weight: 78.75 kg

DRUGS (5)
  1. LISINOPRIL. [Concomitant]
     Active Substance: LISINOPRIL
  2. ATORVASTATIN [Concomitant]
     Active Substance: ATORVASTATIN
  3. HYOSCYAMINE 0.125 SL [Suspect]
     Active Substance: HYOSCYAMINE
     Indication: IRRITABLE BOWEL SYNDROME
     Dosage: OTHER STRENGTH:;OTHER DOSE:;OTHER FREQUENCY:AFTER EVERY MEAL;OTHER ROUTE:
     Route: 060
     Dates: start: 20160820, end: 20160828
  4. VITAMIN D [Concomitant]
     Active Substance: CHOLECALCIFEROL
  5. METFORMIN [Concomitant]
     Active Substance: METFORMIN HYDROCHLORIDE

REACTIONS (11)
  - Diarrhoea [None]
  - Dyspepsia [None]
  - Hyperhidrosis [None]
  - Abdominal pain upper [None]
  - Urinary retention [None]
  - Abdominal distension [None]
  - Product use issue [None]
  - Dizziness [None]
  - Ocular hyperaemia [None]
  - Abdominal discomfort [None]
  - Abnormal faeces [None]

NARRATIVE: CASE EVENT DATE: 20160821
